FAERS Safety Report 4402723-7 (Version None)
Quarter: 2004Q3

REPORT INFORMATION
  Report Type: 
  Country: None (occurrence: None)
  Receive Date: 20040721
  Receipt Date: 20030811
  Transmission Date: 20050211
  Serious: No
  Sender: FDA-Public Use
  Company Number: US-BRISTOL-MYERS SQUIBB COMPANY-12351862

PATIENT
  Age: 47 Year
  Sex: Female
  Weight: 68 kg

DRUGS (1)
  1. ESTRACE [Suspect]
     Indication: HYSTERECTOMY
     Route: 048
     Dates: start: 19900101, end: 19930101

REACTIONS (4)
  - COUGH [None]
  - DEPRESSION [None]
  - STRESS INCONTINENCE [None]
  - WHEEZING [None]
